FAERS Safety Report 4649617-X (Version None)
Quarter: 2005Q2

REPORT INFORMATION
  Report Type: 
  Country: None (occurrence: None)
  Receive Date: 20050427
  Receipt Date: 20050415
  Transmission Date: 20051028
  Serious: Yes (Life-Threatening, Hospitalization)
  Sender: FDA-Public Use
  Company Number: 05P-167-0298169-00

PATIENT
  Age: 64 Year
  Sex: Male

DRUGS (3)
  1. KALETRA [Suspect]
     Dosage: 3 CAPSULE, 2 IN 1 D
     Dates: start: 20021204
  2. TENOFOVIR [Concomitant]
  3. LAMIVUDINE [Concomitant]

REACTIONS (5)
  - DYSPHAGIA [None]
  - GASTROINTESTINAL DISORDER [None]
  - HELICOBACTER INFECTION [None]
  - LYMPHOID TISSUE HYPERPLASIA [None]
  - OESOPHAGEAL ADENOCARCINOMA [None]
